FAERS Safety Report 6162300-7 (Version None)
Quarter: 2009Q2

REPORT INFORMATION
  Report Type: 
  Country: None (occurrence: None)
  Receive Date: 20090421
  Receipt Date: 20090413
  Transmission Date: 20091009
  Serious: Yes (Hospitalization)
  Sender: FDA-Public Use
  Company Number: JP-BRISTOL-MYERS SQUIBB COMPANY-14594774

PATIENT
  Age: 71 Year
  Sex: Female
  Weight: 45 kg

DRUGS (7)
  1. ERBITUX [Suspect]
     Indication: COLON CANCER
     Dosage: (550 MG)11MAR09-11MAR09; (350MG)18MAR09-CONT;RECENT INFUSION ON 01APR09
     Route: 042
     Dates: start: 20090401
  2. IRINOTECAN HCL [Concomitant]
     Indication: COLON CANCER
     Route: 042
     Dates: start: 20090311
  3. POLARAMINE [Concomitant]
     Indication: PREMEDICATION
     Route: 042
     Dates: start: 20090311
  4. DECADRON [Concomitant]
     Indication: PREMEDICATION
     Dosage: TABS(4MG)11MAR09-14MAR09(3 DAYS) ORAL;
     Route: 042
     Dates: start: 20090311
  5. DECADRON [Concomitant]
     Indication: ANTIEMETIC SUPPORTIVE CARE
     Dosage: TABS(4MG)11MAR09-14MAR09(3 DAYS) ORAL;
     Route: 042
     Dates: start: 20090311
  6. GRANISETRON HCL [Concomitant]
     Indication: PREMEDICATION
     Route: 042
     Dates: start: 20090311
  7. WYPAX [Concomitant]
     Indication: ANTIEMETIC SUPPORTIVE CARE
     Route: 048
     Dates: start: 20090311, end: 20090317

REACTIONS (1)
  - DECREASED APPETITE [None]
